FAERS Safety Report 25645654 (Version 1)
Quarter: 2025Q3

REPORT INFORMATION
  Report Type: Spontaneous
  Country: US (occurrence: None)
  Receive Date: 20250804
  Receipt Date: 20250804
  Transmission Date: 20251021
  Serious: Yes (Life-Threatening, Hospitalization, Disabling)
  Sender: FDA-CTU
  Company Number: None

PATIENT
  Age: 17 Year
  Sex: Female
  Weight: 90 kg

DRUGS (9)
  1. OXBRYTA [Suspect]
     Active Substance: VOXELOTOR
     Indication: Sickle cell disease
  2. PENICILLIN [Concomitant]
     Active Substance: PENICILLIN
  3. GABAPENTIN [Concomitant]
     Active Substance: GABAPENTIN
  4. CYPROHEPTADINE [Concomitant]
     Active Substance: CYPROHEPTADINE
  5. BUSPIRONE [Concomitant]
     Active Substance: BUSPIRONE HYDROCHLORIDE
  6. DABIGATRAN [Concomitant]
     Active Substance: DABIGATRAN
  7. MAGNESIUM [Concomitant]
     Active Substance: MAGNESIUM
  8. CALCIUM [Concomitant]
     Active Substance: CALCIUM
  9. FOLIC ACID [Concomitant]
     Active Substance: FOLIC ACID

REACTIONS (5)
  - Deafness neurosensory [None]
  - Thrombosis [None]
  - Deafness bilateral [None]
  - Cochlea implant [None]
  - Pulmonary embolism [None]

NARRATIVE: CASE EVENT DATE: 20231225
